FAERS Safety Report 5007896-3 (Version None)
Quarter: 2006Q2

REPORT INFORMATION
  Report Type: 
  Country: None (occurrence: None)
  Receive Date: 20060518
  Receipt Date: 20060427
  Transmission Date: 20061013
  Serious: Yes (Other)
  Sender: FDA-Public Use
  Company Number: FR200601003566

PATIENT
  Age: 78 Year
  Sex: Female

DRUGS (8)
  1. FORTEO [Suspect]
     Indication: OSTEOPOROSIS
     Dosage: 20 UG, DAILY (1/D), SUBCUTANEOUS
     Route: 058
     Dates: start: 20060103, end: 20060311
  2. FORTEO [Suspect]
     Dosage: 20 UG, OTHER, SUBCUTANEOUS
     Route: 058
     Dates: start: 20060319, end: 20060324
  3. FORTEO PEN (FORTEO PEN) [Concomitant]
  4. FLOXYFRAL (FLUVOXAMINE MALEATE) TABLET [Concomitant]
  5. SELOKEN (METOPROLOL TARTRATE) TABLET [Concomitant]
  6. MEPRONIZINE (ACEPROMETAZINE, MEPROBAMATE) TABLET [Concomitant]
  7. XANAX [Concomitant]
  8. ACETAMINOPHEN [Concomitant]

REACTIONS (15)
  - ABDOMINAL PAIN [None]
  - BEDRIDDEN [None]
  - DEPRESSED MOOD [None]
  - DYSPEPSIA [None]
  - DYSPNOEA [None]
  - FATIGUE [None]
  - HEADACHE [None]
  - HYPERHIDROSIS [None]
  - MALAISE [None]
  - MICTURITION URGENCY [None]
  - OESOPHAGEAL OEDEMA [None]
  - PALPITATIONS [None]
  - SWOLLEN TONGUE [None]
  - TACHYCARDIA [None]
  - VERTIGO [None]
